FAERS Safety Report 24143122 (Version 1)
Quarter: 2024Q3

REPORT INFORMATION
  Report Type: Report from Study
  Country: CA (occurrence: CA)
  Receive Date: 20240726
  Receipt Date: 20240726
  Transmission Date: 20241016
  Serious: Yes (Other)
  Sender: SANDOZ
  Company Number: CA-002147023-NVSC2019CA036959

PATIENT
  Age: 64 Year
  Sex: Female

DRUGS (6)
  1. ERELZI [Suspect]
     Active Substance: ETANERCEPT-SZZS
     Indication: Rheumatoid arthritis
     Dosage: 50 MG, QW
     Route: 058
     Dates: start: 20191025
  2. ACTEMRA [Concomitant]
     Active Substance: TOCILIZUMAB
     Indication: Product used for unknown indication
     Dosage: UNK UNK, UNKNOWN
     Route: 065
  3. CORTISONE [Concomitant]
     Active Substance: CORTISONE
     Indication: Product used for unknown indication
     Dosage: UNK, UNKNOWN
     Route: 065
  4. DESOXIMETASONE [Concomitant]
     Active Substance: DESOXIMETASONE
     Indication: Product used for unknown indication
     Route: 065
  5. LEFLUNOMIDE [Concomitant]
     Active Substance: LEFLUNOMIDE
     Indication: Product used for unknown indication
     Dosage: UNK, UNKNOWN
     Route: 065
     Dates: start: 20190507, end: 20190821
  6. METHOTREXATE [Concomitant]
     Active Substance: METHOTREXATE
     Indication: Product used for unknown indication
     Dosage: UNK, UNKNOWN
     Route: 065
     Dates: start: 20090503, end: 20190507

REACTIONS (12)
  - Hip arthroplasty [Unknown]
  - Knee arthroplasty [Unknown]
  - Blood pressure increased [Unknown]
  - Peripheral swelling [Unknown]
  - Insomnia [Not Recovered/Not Resolved]
  - C-reactive protein increased [Unknown]
  - General physical health deterioration [Unknown]
  - Product dose omission issue [Unknown]
  - Pain in extremity [Unknown]
  - Urinary tract infection [Unknown]
  - Sinusitis [Unknown]
  - Drug ineffective [Unknown]

NARRATIVE: CASE EVENT DATE: 20191025
